FAERS Safety Report 21549073 (Version 2)
Quarter: 2022Q4

REPORT INFORMATION
  Report Type: Spontaneous
  Country: TW (occurrence: TW)
  Receive Date: 20221103
  Receipt Date: 20221109
  Transmission Date: 20230113
  Serious: Yes (Hospitalization, Other)
  Sender: FDA-Public Use
  Company Number: TW-PFIZER INC-PV202200094559

PATIENT
  Age: 64 Year
  Sex: Female

DRUGS (10)
  1. XELJANZ [Suspect]
     Active Substance: TOFACITINIB CITRATE
     Indication: Rheumatoid arthritis
     Dosage: 5 MG, 2X/DAY (BID)
     Route: 048
     Dates: start: 20161101, end: 20221001
  2. HYDROXYCHLOROQUINE [Concomitant]
     Active Substance: HYDROXYCHLOROQUINE
     Dosage: 200 MG, CYCLIC Q2D
     Route: 048
  3. PREDNISOLONE [Concomitant]
     Active Substance: PREDNISOLONE
     Dosage: 7.5 MG, DAILY (QD)
     Route: 048
  4. CELEBREX [Concomitant]
     Active Substance: CELECOXIB
     Dosage: 200 MG, DAILY (QD)
     Route: 048
  5. RALOXIFENE [Concomitant]
     Active Substance: RALOXIFENE
     Dosage: 60 MG, DAILY (QD)
     Route: 048
  6. DOXAZOSIN MESYLATE [Concomitant]
     Active Substance: DOXAZOSIN MESYLATE
     Dosage: 4 MG, DAILY (QD)
     Route: 048
  7. REPAGLINIDE [Concomitant]
     Active Substance: REPAGLINIDE
     Dosage: 0.5 MG, 3X/DAY (TID)
     Route: 048
  8. JANUMET [Concomitant]
     Active Substance: METFORMIN HYDROCHLORIDE\SITAGLIPTIN PHOSPHATE
     Dosage: 1 DF, 2X/DAY  (BID)
     Route: 048
  9. ATORVASTATIN CALCIUM\EZETIMIBE [Concomitant]
     Active Substance: ATORVASTATIN CALCIUM\EZETIMIBE
     Dosage: 1 DF, ALTERNATE DAY (QOD)
     Route: 048
  10. AMLODIPINE BESYLATE\HYDROCHLOROTHIAZIDE\OLMESARTAN MEDOXOMIL [Concomitant]
     Active Substance: AMLODIPINE BESYLATE\HYDROCHLOROTHIAZIDE\OLMESARTAN MEDOXOMIL
     Dosage: 1 DF, DAILY (QD)
     Route: 048

REACTIONS (3)
  - Pancreatic carcinoma [Recovering/Resolving]
  - Intraductal papillary-mucinous carcinoma of pancreas [Recovering/Resolving]
  - Second primary malignancy [Recovering/Resolving]

NARRATIVE: CASE EVENT DATE: 20220501
